FAERS Safety Report 9020185 (Version 1)
Quarter: 2013Q1

REPORT INFORMATION
  Report Type: Spontaneous
  Country: US (occurrence: US)
  Receive Date: 20130119
  Receipt Date: 20130119
  Transmission Date: 20140127
  Serious: No
  Sender: FDA-Public Use
  Company Number: US-ALLERGAN-1210296US

PATIENT
  Age: 47 Year
  Sex: Female

DRUGS (3)
  1. BOTOX COSMETIC [Suspect]
     Indication: SKIN WRINKLING
     Dosage: UNK, SINGLE
     Route: 030
     Dates: start: 20120629, end: 20120629
  2. VITAMINS [Concomitant]
     Indication: NUTRITIONAL SUPPLEMENTATION
  3. FISH OIL [Concomitant]
     Indication: NUTRITIONAL SUPPLEMENTATION

REACTIONS (4)
  - Headache [Recovered/Resolved]
  - Pyrexia [Recovered/Resolved]
  - Pain [Recovered/Resolved]
  - Pain [Recovered/Resolved]
